FAERS Safety Report 15935184 (Version 4)
Quarter: 2020Q4

REPORT INFORMATION
  Report Type: Report from Study
  Country: None (occurrence: CA)
  Receive Date: 20190207
  Receipt Date: 20201020
  Transmission Date: 20210113
  Serious: Yes (Other)
  Sender: FDA-Public Use
  Company Number: CA-ABBVIE-19K-028-2653026-00

PATIENT
  Age: 81 Year
  Sex: Male

DRUGS (2)
  1. HUMIRA [Suspect]
     Active Substance: ADALIMUMAB
     Route: 058
     Dates: start: 2019
  2. HUMIRA [Suspect]
     Active Substance: ADALIMUMAB
     Indication: RHEUMATOID ARTHRITIS
     Route: 058
     Dates: start: 20180713, end: 201901

REACTIONS (16)
  - Spinal disorder [Not Recovered/Not Resolved]
  - Fall [Recovered/Resolved]
  - Therapeutic product effect decreased [Not Recovered/Not Resolved]
  - Ear disorder [Not Recovered/Not Resolved]
  - Injury [Not Recovered/Not Resolved]
  - Auditory disorder [Not Recovered/Not Resolved]
  - Balance disorder [Not Recovered/Not Resolved]
  - Dizziness [Not Recovered/Not Resolved]
  - Fall [Recovered/Resolved]
  - Spinal cord injury [Not Recovered/Not Resolved]
  - Fall [Recovered/Resolved]
  - Rheumatoid arthritis [Not Recovered/Not Resolved]
  - Fall [Unknown]
  - Cerebral thrombosis [Not Recovered/Not Resolved]
  - Post-traumatic pain [Not Recovered/Not Resolved]
  - Cerebral haemorrhage [Not Recovered/Not Resolved]

NARRATIVE: CASE EVENT DATE: 20181126
